FAERS Safety Report 6982543-X (Version None)
Quarter: 2010Q3

REPORT INFORMATION
  Report Type: 
  Country: None (occurrence: None)
  Receive Date: 20100914
  Receipt Date: 20100212
  Transmission Date: 20110219
  Serious: No
  Sender: FDA-Public Use
  Company Number: US-PFIZER INC-2010021561

PATIENT
  Sex: Female
  Weight: 90.5 kg

DRUGS (7)
  1. LYRICA [Suspect]
     Indication: SPINAL COLUMN STENOSIS
     Dosage: 50 MG, 1X/DAY
     Route: 048
     Dates: start: 20100129, end: 20100207
  2. LYRICA [Suspect]
     Indication: SCOLIOSIS
  3. LYRICA [Suspect]
     Indication: DIABETES MELLITUS
  4. METFORMIN [Concomitant]
     Dosage: UNK
  5. LIPITOR [Concomitant]
     Dosage: UNK
  6. CYMBALTA [Concomitant]
     Dosage: UNK
  7. AVALIDE [Concomitant]
     Indication: HYPERTENSION
     Dosage: UNK

REACTIONS (1)
  - WEIGHT INCREASED [None]
